FAERS Safety Report 8312146-6 (Version None)
Quarter: 2012Q2

REPORT INFORMATION
  Report Type: 
  Country: None (occurrence: None)
  Receive Date: 20120425
  Receipt Date: 20110808
  Transmission Date: 20120825
  Serious: Yes (Other)
  Sender: FDA-Public Use
  Company Number: US-TEVA-US018069

PATIENT
  Age: 63 Year
  Sex: Female

DRUGS (1)
  1. PROVIGIL [Suspect]
     Dosage: 200 MILLIGRAM;
     Route: 048

REACTIONS (2)
  - SUICIDAL IDEATION [None]
  - DEPRESSION [None]
